FAERS Safety Report 23130221 (Version 2)
Quarter: 2024Q3

REPORT INFORMATION
  Report Type: Spontaneous
  Country: US (occurrence: US)
  Receive Date: 20231031
  Receipt Date: 20240822
  Transmission Date: 20241017
  Serious: No
  Sender: BRISTOL MYERS SQUIBB
  Company Number: US-BRISTOL-MYERS SQUIBB COMPANY-2023-154690

PATIENT
  Age: 76 Year
  Sex: Male
  Weight: 85.28 kg

DRUGS (1)
  1. REVLIMID [Suspect]
     Active Substance: LENALIDOMIDE
     Indication: Plasma cell myeloma
     Dosage: FREQ: DAILY FOR 28DAYS
     Route: 048

REACTIONS (3)
  - Rash [Not Recovered/Not Resolved]
  - Swelling [Unknown]
  - Off label use [Unknown]
